FAERS Safety Report 18453487 (Version 1)
Quarter: 2020Q4

REPORT INFORMATION
  Report Type: Report from Study
  Country: KR (occurrence: KR)
  Receive Date: 20201102
  Receipt Date: 20201102
  Transmission Date: 20210114
  Serious: Yes (Hospitalization)
  Sender: FDA-Public Use
  Company Number: KR-JNJFOC-A-CH2017-149558

PATIENT
  Age: 60 Year
  Sex: Female
  Weight: 55.5 kg

DRUGS (21)
  1. ALDACTONE [Concomitant]
     Active Substance: SPIRONOLACTONE
     Dosage: 25 MG, UNK
     Route: 048
     Dates: start: 20160113, end: 20170111
  2. DIGOSIN [Concomitant]
     Active Substance: DIGOXIN
     Dosage: 0.5 MG, QD
     Route: 048
     Dates: start: 20160420, end: 20170111
  3. FEBURIC [Concomitant]
     Active Substance: FEBUXOSTAT
     Route: 048
     Dates: start: 20161130
  4. BORYUNG NIMODIPINE [Concomitant]
     Dosage: 100 MG, QD
     Route: 048
     Dates: start: 20150411
  5. FEBURIC [Concomitant]
     Active Substance: FEBUXOSTAT
     Dosage: 40 MG, OD
     Route: 048
     Dates: start: 20150401, end: 20161129
  6. SYNTHROID [Concomitant]
     Active Substance: LEVOTHYROXINE SODIUM
     Dosage: 0.1 MG, OD
     Route: 048
     Dates: start: 20150401
  7. CALCORT [Concomitant]
     Active Substance: DEFLAZACORT
     Dosage: 6 MG, BID
     Route: 048
     Dates: start: 20150401
  8. MACITENTAN [Suspect]
     Active Substance: MACITENTAN
     Indication: PULMONARY ARTERIAL HYPERTENSION
     Dosage: 10 MG, QD
     Route: 048
     Dates: start: 20161019
  9. LASIX [Concomitant]
     Active Substance: FUROSEMIDE
     Dosage: 40 MG, QD
     Route: 048
     Dates: start: 20150812, end: 20170111
  10. LASIX [Concomitant]
     Active Substance: FUROSEMIDE
     Route: 048
     Dates: start: 20170112, end: 20170223
  11. MYREPT [Concomitant]
     Active Substance: MYCOPHENOLATE MOFETIL
     Dosage: 3000 MG, QD
     Route: 048
     Dates: start: 20161129, end: 20170131
  12. SEPTRIN [Concomitant]
     Active Substance: SULFAMETHOXAZOLE\TRIMETHOPRIM
     Dosage: 1 MG, QD
     Route: 048
     Dates: start: 20150429
  13. ALDACTONE [Concomitant]
     Active Substance: SPIRONOLACTONE
     Route: 048
     Dates: start: 20170112
  14. DICAMAX [Concomitant]
     Dosage: UNK , UNK
     Dates: start: 20150401
  15. MYREPT [Concomitant]
     Active Substance: MYCOPHENOLATE MOFETIL
     Dosage: 2000 MG, QD
     Route: 048
     Dates: start: 20170201
  16. PAHTENSION [Concomitant]
     Active Substance: SILDENAFIL CITRATE
     Indication: PULMONARY ARTERIAL HYPERTENSION
     Dosage: 60 MG, QD
     Route: 048
     Dates: start: 20150406
  17. ESOMEPRAZOL [Concomitant]
     Active Substance: ESOMEPRAZOLE
     Dosage: 20 MG, OD
     Route: 048
     Dates: start: 20150512
  18. MUCOSTA [Concomitant]
     Active Substance: REBAMIPIDE
     Dosage: 100 MG, BID
     Route: 048
     Dates: start: 20160428
  19. MYREPT [Concomitant]
     Active Substance: MYCOPHENOLATE MOFETIL
     Dosage: 2000 MG, QD
     Route: 048
     Dates: start: 20160428, end: 20161128
  20. XANAX [Concomitant]
     Active Substance: ALPRAZOLAM
     Dosage: 0.125 MG, OD
     Route: 048
     Dates: start: 20170224
  21. FERROBA-U [Concomitant]
     Route: 048
     Dates: start: 20150401, end: 20170116

REACTIONS (7)
  - Cardiac failure [Unknown]
  - Pyrexia [Recovered/Resolved]
  - Pericardial effusion [Recovered/Resolved]
  - Left ventricular failure [Recovered/Resolved]
  - Lupus pneumonitis [Recovered/Resolved]
  - Procalcitonin increased [Recovered/Resolved]
  - Antibody test abnormal [Recovered/Resolved]

NARRATIVE: CASE EVENT DATE: 20161019
